FAERS Safety Report 24561022 (Version 1)
Quarter: 2024Q4

REPORT INFORMATION
  Report Type: Spontaneous
  Country: US (occurrence: US)
  Receive Date: 20241029
  Receipt Date: 20241029
  Transmission Date: 20250115
  Serious: No
  Sender: NOBELPHARMA AMERICA, LLC
  Company Number: US-Nobelpharma America, LLC-NPA-2024-01845

PATIENT
  Age: 44 Year
  Sex: Female

DRUGS (5)
  1. HYFTOR [Suspect]
     Active Substance: SIROLIMUS
     Indication: Angiofibroma
     Route: 061
     Dates: start: 20240426
  2. HYFTOR [Suspect]
     Active Substance: SIROLIMUS
     Route: 061
     Dates: start: 20240920
  3. LETROZOLE [Concomitant]
     Active Substance: LETROZOLE
  4. BUPROPION [Concomitant]
     Active Substance: BUPROPION
  5. VITAMINS [Concomitant]
     Active Substance: VITAMINS

REACTIONS (3)
  - Skin fissures [Recovered/Resolved]
  - Dry skin [Recovered/Resolved]
  - Off label use [Unknown]

NARRATIVE: CASE EVENT DATE: 20240920
